FAERS Safety Report 14112846 (Version 1)
Quarter: 2017Q4

REPORT INFORMATION
  Report Type: Spontaneous
  Country: US (occurrence: US)
  Receive Date: 20171022
  Receipt Date: 20171022
  Transmission Date: 20180321
  Serious: No
  Sender: FDA-Public Use
  Company Number: US-TEVA-817381ACC

PATIENT
  Age: 25 Year
  Sex: Female
  Weight: 108.96 kg

DRUGS (2)
  1. ALBUTEROL. [Concomitant]
     Active Substance: ALBUTEROL
     Indication: ASTHMA
  2. PLAN B ONE-STEP [Suspect]
     Active Substance: LEVONORGESTREL
     Indication: POST COITAL CONTRACEPTION
     Dates: start: 20170701, end: 20170701

REACTIONS (10)
  - Vaginal haemorrhage [Not Recovered/Not Resolved]
  - Fatigue [Not Recovered/Not Resolved]
  - Gastrooesophageal reflux disease [Recovered/Resolved]
  - Menstruation delayed [Not Recovered/Not Resolved]
  - Mood altered [Not Recovered/Not Resolved]
  - Hunger [Not Recovered/Not Resolved]
  - Menorrhagia [Unknown]
  - Menstruation irregular [Recovered/Resolved]
  - Dysmenorrhoea [Not Recovered/Not Resolved]
  - Hypomenorrhoea [Unknown]

NARRATIVE: CASE EVENT DATE: 201707
